FAERS Safety Report 6456597-3 (Version None)
Quarter: 2009Q4

REPORT INFORMATION
  Report Type: 
  Country: None (occurrence: None)
  Receive Date: 20091120
  Receipt Date: 20091116
  Transmission Date: 20100525
  Serious: Yes (Other)
  Sender: FDA-Public Use
  Company Number: 09US005105

PATIENT
  Age: 91 Year
  Sex: Female
  Weight: 65.8 kg

DRUGS (6)
  1. PHENYLEPHRINE HYDROCHLORIDE [Suspect]
     Indication: NASAL CONGESTION
     Dosage: 10 MG, QD, ORAL
     Route: 048
     Dates: start: 20071116
  2. SYNTHROID [Concomitant]
  3. LOPID [Concomitant]
  4. ENALAPRIL (ENALAPRIL MALEATE, HYDROCHLOROTHIAZIDE) [Concomitant]
  5. CALCIUM (CALCIUM GLUBIONATE) [Concomitant]
  6. VITAMINS NOS (EYE CAPS) [Concomitant]

REACTIONS (2)
  - AMNESIA [None]
  - INCORRECT DRUG ADMINISTRATION DURATION [None]
